FAERS Safety Report 9175528 (Version 1)
Quarter: 2013Q1

REPORT INFORMATION
  Report Type: Spontaneous
  Country: US (occurrence: US)
  Receive Date: 20130320
  Receipt Date: 20130320
  Transmission Date: 20140127
  Serious: Yes (Hospitalization, Other)
  Sender: FDA-Public Use
  Company Number: US-ROCHE-662540

PATIENT
  Age: 15 Year
  Sex: Male

DRUGS (3)
  1. ACCUTANE [Suspect]
     Indication: ACNE
     Route: 048
     Dates: start: 20020904, end: 20030218
  2. VITAMIN E [Concomitant]
     Route: 065
  3. POLYSPORIN [Concomitant]
     Route: 065

REACTIONS (10)
  - Inflammatory bowel disease [Unknown]
  - Crohn^s disease [Unknown]
  - Rectal ulcer [Unknown]
  - Large intestinal ulcer [Unknown]
  - Chapped lips [Unknown]
  - Epistaxis [Unknown]
  - Dry skin [Unknown]
  - Dermatitis [Unknown]
  - Rash [Unknown]
  - Suicidal ideation [Unknown]
